FAERS Safety Report 9613758 (Version 1)
Quarter: 2013Q4

REPORT INFORMATION
  Report Type: Report from Study
  Country: BR (occurrence: BR)
  Receive Date: 20131010
  Receipt Date: 20131010
  Transmission Date: 20140711
  Serious: Yes (Hospitalization, Other)
  Sender: FDA-Public Use
  Company Number: PHHY2013BR113801

PATIENT
  Sex: Female
  Weight: 70 kg

DRUGS (5)
  1. EXELON PATCH [Suspect]
     Indication: DEMENTIA ALZHEIMER^S TYPE
     Dosage: 9.5 MG, DAILY
     Route: 062
  2. FLANCOX [Concomitant]
     Dosage: UNK UKN, UNK
  3. PHENOBARBITAL [Concomitant]
     Indication: ELECTRIC INJURY
     Dosage: UNK UKN, UNK
  4. RISPERIDONE [Concomitant]
     Dosage: UNK UKN, UNK
  5. SERTRALINE [Concomitant]
     Dosage: UNK UKN, UNK

REACTIONS (6)
  - Neurogenic bladder [Recovering/Resolving]
  - Urinary retention [Recovering/Resolving]
  - Cystitis [Recovering/Resolving]
  - Bladder discomfort [Recovering/Resolving]
  - Inflammation [Recovering/Resolving]
  - Weight decreased [Recovering/Resolving]
